FAERS Safety Report 8172799-2 (Version None)
Quarter: 2012Q1

REPORT INFORMATION
  Report Type: 
  Country: None (occurrence: None)
  Receive Date: 20120223
  Receipt Date: 20120208
  Transmission Date: 20120608
  Serious: Yes (Hospitalization)
  Sender: FDA-Public Use
  Company Number: CA-007740

PATIENT
  Age: 85 Year
  Sex: Male

DRUGS (8)
  1. CLOPIDOGREL [Concomitant]
  2. TYLENOL (CAPLET) [Concomitant]
  3. FIRMAGON [Suspect]
     Indication: PROSTATE CANCER
     Dosage: (240 MG 1X SUBCUTANEOUS), (80 MG 1X/MONTH SUBCUTANEOUS)
     Route: 058
     Dates: start: 20110705, end: 20110705
  4. FIRMAGON [Suspect]
     Indication: PROSTATE CANCER
     Dosage: (240 MG 1X SUBCUTANEOUS), (80 MG 1X/MONTH SUBCUTANEOUS)
     Route: 058
     Dates: start: 20110803
  5. LOPRESSOR [Concomitant]
  6. PANTOLOC /01263202/ [Concomitant]
  7. ASPIRIN [Concomitant]
  8. BICALUTAMIDE [Concomitant]

REACTIONS (5)
  - FATIGUE [None]
  - SOMNOLENCE [None]
  - TYPE 2 DIABETES MELLITUS [None]
  - HEADACHE [None]
  - CAPILLARY DISORDER [None]
